FAERS Safety Report 11982366 (Version 1)
Quarter: 2016Q1

REPORT INFORMATION
  Report Type: Spontaneous
  Country: FR (occurrence: FR)
  Receive Date: 20160201
  Receipt Date: 20160201
  Transmission Date: 20160526
  Serious: Yes (Hospitalization, Other)
  Sender: FDA-Public Use
  Company Number: FR-TEVA-631113ISR

PATIENT
  Age: 25 Year
  Sex: Male

DRUGS (2)
  1. NALMEFENE [Interacting]
     Active Substance: NALMEFENE
     Route: 048
  2. BUPRENORPHINE. [Suspect]
     Active Substance: BUPRENORPHINE

REACTIONS (4)
  - Drug withdrawal syndrome [Unknown]
  - Drug ineffective [Unknown]
  - Drug prescribing error [Unknown]
  - Drug interaction [Unknown]
